FAERS Safety Report 14027720 (Version 1)
Quarter: 2017Q3

REPORT INFORMATION
  Report Type: Spontaneous
  Country: ZA (occurrence: ZA)
  Receive Date: 20170929
  Receipt Date: 20170929
  Transmission Date: 20171128
  Serious: Yes (Death, Other)
  Sender: FDA-Public Use
  Company Number: ZA-MYLANLABS-2017M1061713

PATIENT
  Age: 23 Year
  Sex: Male

DRUGS (2)
  1. CLOZAPINE. [Suspect]
     Active Substance: CLOZAPINE
     Dosage: 400 MG, UNK
  2. CLOZAPINE. [Suspect]
     Active Substance: CLOZAPINE
     Indication: SCHIZOPHRENIA
     Dosage: UNK

REACTIONS (8)
  - Morbid thoughts [Unknown]
  - Delusion [Unknown]
  - Faecaloma [Unknown]
  - Iron deficiency [Unknown]
  - Intestinal perforation [Fatal]
  - Peritonitis [Unknown]
  - Diet refusal [Unknown]
  - Self-induced vomiting [Unknown]
